FAERS Safety Report 5157927-5 (Version None)
Quarter: 2006Q4

REPORT INFORMATION
  Report Type: 
  Country: None (occurrence: None)
  Receive Date: 20061115
  Receipt Date: 20061031
  Transmission Date: 20070319
  Serious: Yes (Hospitalization)
  Sender: FDA-Public Use
  Company Number: 8019297

PATIENT
  Age: 67 Year
  Sex: Female
  Weight: 70 kg

DRUGS (5)
  1. KEPPRA [Suspect]
     Indication: PARTIAL SEIZURES
     Dosage: 3000 MG /D PO
     Route: 048
     Dates: start: 20060501
  2. PHENYTOIN SODIUM CAP [Concomitant]
  3. INEGY [Concomitant]
  4. CONCOR       /00802603/ [Concomitant]
  5. ATACAND [Concomitant]

REACTIONS (2)
  - DELUSION [None]
  - PSYCHOTIC DISORDER [None]
